FAERS Safety Report 6202373-6 (Version None)
Quarter: 2009Q2

REPORT INFORMATION
  Report Type: 
  Country: None (occurrence: None)
  Receive Date: 20090520
  Receipt Date: 20090507
  Transmission Date: 20091009
  Serious: Yes (Death)
  Sender: FDA-Public Use
  Company Number: 2009AL001184

PATIENT
  Age: 86 Year
  Sex: Female

DRUGS (5)
  1. DIGOXIN [Suspect]
     Dosage: 0.125MG, DAILY, PO
     Route: 048
  2. ATACAND [Concomitant]
  3. PLAVIX [Concomitant]
  4. GLIMEPIRIDE [Concomitant]
  5. CARVEDILOL [Concomitant]

REACTIONS (10)
  - ANHEDONIA [None]
  - ECONOMIC PROBLEM [None]
  - EMOTIONAL DISORDER [None]
  - INJURY [None]
  - MENTAL DISORDER [None]
  - OROPHARYNGEAL PAIN [None]
  - PAIN [None]
  - RENAL FAILURE ACUTE [None]
  - SOCIAL AVOIDANT BEHAVIOUR [None]
  - UNEVALUABLE EVENT [None]
